FAERS Safety Report 14411507 (Version 1)
Quarter: 2018Q1

REPORT INFORMATION
  Report Type: Spontaneous
  Country: AR (occurrence: AR)
  Receive Date: 20180119
  Receipt Date: 20180119
  Transmission Date: 20180509
  Serious: Yes (Other)
  Sender: FDA-Public Use
  Company Number: AR-PFIZER INC-2018025621

PATIENT
  Age: 17 Year
  Sex: Male

DRUGS (1)
  1. GENOTROPIN [Suspect]
     Active Substance: SOMATROPIN
     Indication: BODY HEIGHT BELOW NORMAL
     Dosage: 3 TIMES PER WEEK 2.2 MG AND 4 TIMES PER WEEK 2.0 MG
     Dates: start: 20150928, end: 201712

REACTIONS (2)
  - Autoimmune hepatitis [Recovering/Resolving]
  - Enzyme level increased [Recovering/Resolving]
